FAERS Safety Report 10092359 (Version 1)
Quarter: 2014Q2

REPORT INFORMATION
  Report Type: Spontaneous
  Country: US (occurrence: US)
  Receive Date: 20140421
  Receipt Date: 20140421
  Transmission Date: 20141212
  Serious: No
  Sender: FDA-Public Use
  Company Number: US-SANOFI-AVENTIS-2013SA031320

PATIENT
  Age: 33 Year
  Sex: Female

DRUGS (2)
  1. ALLEGRA [Suspect]
     Indication: SINUS OPERATION
     Route: 048
     Dates: start: 20130319, end: 20130319
  2. ALLEGRA [Suspect]
     Indication: NASAL CONGESTION
     Route: 048
     Dates: start: 20130319, end: 20130319

REACTIONS (1)
  - Drug effect decreased [Unknown]
